FAERS Safety Report 4526097-6 (Version None)
Quarter: 2004Q4

REPORT INFORMATION
  Report Type: 
  Country: None (occurrence: None)
  Receive Date: 20041213
  Receipt Date: 20041213
  Transmission Date: 20050328
  Serious: No
  Sender: FDA-Public Use
  Company Number: None

PATIENT
  Sex: Male

DRUGS (5)
  1. FUROSEMIDE [Suspect]
     Indication: CARDIAC FAILURE CONGESTIVE
     Dosage: 40 MG ORAL
     Route: 048
     Dates: start: 19990824
  2. FUROSEMIDE [Suspect]
     Indication: OEDEMA
     Dosage: 40 MG ORAL
     Route: 048
     Dates: start: 19990824
  3. CARDIZEM [Concomitant]
  4. CARDURA [Concomitant]
  5. ASPIRIN [Concomitant]

REACTIONS (4)
  - CARDIAC FAILURE CONGESTIVE [None]
  - DRUG EFFECT DECREASED [None]
  - DYSPNOEA [None]
  - PHARMACEUTICAL PRODUCT COMPLAINT [None]
